FAERS Safety Report 21351490 (Version 3)
Quarter: 2023Q1

REPORT INFORMATION
  Report Type: Report from Study
  Country: US (occurrence: US)
  Receive Date: 20220919
  Receipt Date: 20230310
  Transmission Date: 20230417
  Serious: Yes (Other)
  Sender: FDA-Public Use
  Company Number: US-PFIZER INC-PV202200060261

PATIENT
  Age: 77 Year
  Sex: Male
  Weight: 90.8 kg

DRUGS (8)
  1. ABROCITINIB [Suspect]
     Active Substance: ABROCITINIB
     Indication: Dermatitis atopic
     Dosage: 100 MG, 1X/DAY
     Route: 048
     Dates: start: 20190630, end: 20220906
  2. MINERALS\VITAMINS [Concomitant]
     Active Substance: MINERALS\VITAMINS
     Indication: Vitamin supplementation
     Dosage: 1 TABLET, 1X/DAY, MULTIVITAMIN
     Route: 048
     Dates: start: 2008
  3. FISH OIL [Concomitant]
     Active Substance: FISH OIL
     Indication: Vitamin supplementation
     Dosage: 1200 MG, 1X/DAY
     Route: 048
     Dates: start: 2008
  4. CALCIUM [Concomitant]
     Active Substance: CALCIUM
     Indication: Vitamin supplementation
     Dosage: 1000 MG, 1X/DAY
     Route: 048
     Dates: start: 2008
  5. VITAMIN C [Concomitant]
     Active Substance: ASCORBIC ACID
     Indication: Vitamin supplementation
     Dosage: 90 MG, 1X/DAY
     Route: 048
     Dates: start: 2008
  6. IBUPROFEN [Concomitant]
     Active Substance: IBUPROFEN
     Indication: Tension headache
     Dosage: 400 MG, AS NEEDED
     Route: 048
     Dates: start: 2008
  7. PROBIOTIC [BIFIDOBACTERIUM INFANTIS;LACTOBACILLUS ACIDOPHILUS] [Concomitant]
     Indication: Nutritional supplementation
     Dosage: 1 TAB, 1X/DAY
     Route: 048
     Dates: start: 2008
  8. VITAMIN E [Concomitant]
     Active Substance: .ALPHA.-TOCOPHEROL
     Indication: Vitamin supplementation
     Dosage: 15 MG, 1X/DAY
     Route: 048
     Dates: start: 2008

REACTIONS (1)
  - Prostate cancer [Recovering/Resolving]

NARRATIVE: CASE EVENT DATE: 20220816
